FAERS Safety Report 5116345-6 (Version None)
Quarter: 2006Q3

REPORT INFORMATION
  Report Type: 
  Country: None (occurrence: None)
  Receive Date: 20060927
  Receipt Date: 20060918
  Transmission Date: 20061208
  Serious: Yes (Life-Threatening, Hospitalization)
  Sender: FDA-Public Use
  Company Number: DE-ABBOTT-06P-062-0344065-00

PATIENT
  Sex: Male
  Weight: 68 kg

DRUGS (10)
  1. ZEMPLAR [Suspect]
     Indication: RENAL DISORDER
     Route: 042
     Dates: start: 20060531
  2. CANDESARTAN CILEXETIL [Concomitant]
     Indication: HYPERTENSION
     Route: 048
     Dates: start: 19980101
  3. CARVEDILOL [Concomitant]
     Indication: HYPERTENSION
     Route: 048
     Dates: start: 20010101
  4. AMLODIPINE BESYLATE [Concomitant]
     Indication: HYPERTENSION
     Dates: start: 20060701
  5. ASPIRIN [Concomitant]
     Indication: CORONARY ARTERY DISEASE
     Route: 048
     Dates: start: 19990101
  6. VITARENAL [Concomitant]
     Indication: RENAL FAILURE CHRONIC
     Route: 048
     Dates: start: 20000101
  7. CALCIUM ACETATE [Concomitant]
     Indication: RENAL FAILURE CHRONIC
     Dates: start: 20060601
  8. LEVOTHYROXINE SODIUM [Concomitant]
     Indication: GOITRE
     Route: 048
     Dates: start: 20060101
  9. VALORON N [Concomitant]
     Indication: POLYNEUROPATHY
     Route: 048
     Dates: start: 20060601
  10. EPOETIN ALFA [Concomitant]
     Indication: NEPHROGENIC ANAEMIA
     Route: 042
     Dates: start: 19980101

REACTIONS (2)
  - LARGE INTESTINE PERFORATION [None]
  - PERITONITIS [None]
